FAERS Safety Report 8246955-9 (Version None)
Quarter: 2012Q1

REPORT INFORMATION
  Report Type: 
  Country: None (occurrence: None)
  Receive Date: 20120327
  Receipt Date: 20120130
  Transmission Date: 20120608
  Serious: Yes (Death, Hospitalization)
  Sender: FDA-Public Use
  Company Number: TCI2012A00379

PATIENT

DRUGS (1)
  1. LANSOPRAZOLE [Suspect]
     Route: 048

REACTIONS (2)
  - DRUG ERUPTION [None]
  - INTERSTITIAL LUNG DISEASE [None]
